FAERS Safety Report 22287344 (Version 1)
Quarter: 2023Q2

REPORT INFORMATION
  Report Type: Spontaneous
  Country: GR (occurrence: GR)
  Receive Date: 20230505
  Receipt Date: 20230505
  Transmission Date: 20230722
  Serious: Yes (Hospitalization, Other)
  Sender: FDA-Public Use
  Company Number: GR-SUN PHARMACEUTICAL INDUSTRIES LTD-2023RR-387369

PATIENT
  Age: 58 Year
  Sex: Female

DRUGS (4)
  1. BORTEZOMIB [Suspect]
     Active Substance: BORTEZOMIB
     Indication: Plasma cell myeloma refractory
     Dosage: 21-DAY CYCLE, 3 CYCLES
     Route: 065
  2. LENALIDOMIDE [Suspect]
     Active Substance: LENALIDOMIDE
     Indication: Plasma cell myeloma refractory
     Dosage: 25 MILLIGRAM, DAILY FOR 21 DAYS
     Route: 065
  3. DEXAMETHASONE [Suspect]
     Active Substance: DEXAMETHASONE
     Indication: Plasma cell myeloma refractory
     Dosage: 21-DAY CYCLE, 3 CYCLES
     Route: 065
  4. DEXAMETHASONE [Suspect]
     Active Substance: DEXAMETHASONE
     Dosage: 20 MILLIGRAM, WEEKLY
     Route: 065

REACTIONS (6)
  - Neuropathy peripheral [Unknown]
  - Hypotension [Unknown]
  - Therapeutic product effect incomplete [Unknown]
  - Disease recurrence [Recovered/Resolved]
  - Immunodeficiency [Unknown]
  - Visceral leishmaniasis [Recovered/Resolved]
